FAERS Safety Report 13703015 (Version 7)
Quarter: 2018Q1

REPORT INFORMATION
  Report Type: Spontaneous
  Country: US (occurrence: US)
  Receive Date: 20170629
  Receipt Date: 20180108
  Transmission Date: 20180508
  Serious: Yes (Other)
  Sender: FDA-Public Use
  Company Number: US-PFIZER INC-2017276184

PATIENT
  Age: 66 Year
  Sex: Male
  Weight: 99.32 kg

DRUGS (11)
  1. AMLODIPINE [Concomitant]
     Active Substance: AMLODIPINE BESYLATE
     Dosage: UNK
  2. FLEXERIL [Concomitant]
     Active Substance: CYCLOBENZAPRINE HYDROCHLORIDE
     Dosage: UNK
  3. VITAMIN B12 [Concomitant]
     Active Substance: CYANOCOBALAMIN
     Dosage: UNK
  4. SUTENT [Suspect]
     Active Substance: SUNITINIB MALATE
     Indication: RENAL CANCER METASTATIC
     Dosage: 50 MG, CYCLIC (2WEEKS ON / 1 WEEK OFF)
     Dates: start: 20170528
  5. ALLOPURINOL. [Concomitant]
     Active Substance: ALLOPURINOL
     Dosage: UNK
  6. XGEVA [Concomitant]
     Active Substance: DENOSUMAB
     Dosage: UNK
  7. XANAX [Concomitant]
     Active Substance: ALPRAZOLAM
     Dosage: UNK
  8. NORCO [Concomitant]
     Active Substance: ACETAMINOPHEN\HYDROCODONE BITARTRATE
     Dosage: UNK
  9. PRILOSEC [Concomitant]
     Active Substance: OMEPRAZOLE MAGNESIUM
     Dosage: UNK
  10. SYMBICORT [Concomitant]
     Active Substance: BUDESONIDE\FORMOTEROL FUMARATE DIHYDRATE
     Dosage: UNK
     Route: 055
  11. ALBUTEROL. [Concomitant]
     Active Substance: ALBUTEROL
     Dosage: UNK
     Route: 055

REACTIONS (13)
  - Skin discolouration [Recovering/Resolving]
  - Depression [Unknown]
  - White blood cell count decreased [Unknown]
  - Feeling cold [Unknown]
  - Asthenia [Recovering/Resolving]
  - Fatigue [Unknown]
  - Memory impairment [Unknown]
  - Tooth abscess [Unknown]
  - Condition aggravated [Unknown]
  - Gout [Unknown]
  - Aortic aneurysm [Unknown]
  - Poor quality sleep [Unknown]
  - Blood uric acid increased [Recovered/Resolved]
